FAERS Safety Report 8821286 (Version 1)
Quarter: 2012Q4

REPORT INFORMATION
  Report Type: 
  Country: US (occurrence: US)
  Receive Date: 20121002
  Receipt Date: 20121002
  Transmission Date: 20130627
  Serious: No
  Sender: FDA-Public Use
  Company Number: US-ASTRAZENECA-2012SE49917

PATIENT
  Age: 87 Year
  Sex: Female

DRUGS (2)
  1. CRESTOR [Suspect]
     Dosage: EVERY OTHER DAY
     Route: 048
  2. CRESTOR [Suspect]
     Dosage: EVERYDAY
     Route: 048

REACTIONS (2)
  - Blood cholesterol increased [Unknown]
  - Intentional drug misuse [Unknown]
